FAERS Safety Report 24401091 (Version 1)
Quarter: 2024Q4

REPORT INFORMATION
  Report Type: Spontaneous
  Country: US (occurrence: US)
  Receive Date: 20241006
  Receipt Date: 20241006
  Transmission Date: 20250115
  Serious: No
  Sender: ELI LILLY AND CO
  Company Number: US-ELI_LILLY_AND_COMPANY-US202409012789

PATIENT
  Age: 60 Year
  Sex: Female

DRUGS (127)
  1. MOUNJARO [Suspect]
     Active Substance: TIRZEPATIDE
     Indication: Blood glucose increased
     Dosage: 2.5 MG, UNKNOWN
     Route: 058
     Dates: start: 202211
  2. MOUNJARO [Suspect]
     Active Substance: TIRZEPATIDE
     Indication: Blood glucose increased
     Dosage: 2.5 MG, UNKNOWN
     Route: 058
     Dates: start: 202211
  3. MOUNJARO [Suspect]
     Active Substance: TIRZEPATIDE
     Indication: Blood glucose increased
     Dosage: 2.5 MG, UNKNOWN
     Route: 058
     Dates: start: 202211
  4. MOUNJARO [Suspect]
     Active Substance: TIRZEPATIDE
     Indication: Blood glucose increased
     Dosage: 2.5 MG, UNKNOWN
     Route: 058
     Dates: start: 202211
  5. MOUNJARO [Suspect]
     Active Substance: TIRZEPATIDE
     Indication: Blood cholesterol increased
  6. MOUNJARO [Suspect]
     Active Substance: TIRZEPATIDE
     Indication: Blood cholesterol increased
  7. MOUNJARO [Suspect]
     Active Substance: TIRZEPATIDE
     Indication: Blood cholesterol increased
  8. MOUNJARO [Suspect]
     Active Substance: TIRZEPATIDE
     Indication: Blood cholesterol increased
  9. MOUNJARO [Suspect]
     Active Substance: TIRZEPATIDE
     Indication: Cerebrovascular accident
  10. MOUNJARO [Suspect]
     Active Substance: TIRZEPATIDE
     Indication: Cerebrovascular accident
  11. MOUNJARO [Suspect]
     Active Substance: TIRZEPATIDE
     Indication: Cerebrovascular accident
  12. MOUNJARO [Suspect]
     Active Substance: TIRZEPATIDE
     Indication: Cerebrovascular accident
  13. MOUNJARO [Suspect]
     Active Substance: TIRZEPATIDE
     Indication: Neuropathy peripheral
  14. MOUNJARO [Suspect]
     Active Substance: TIRZEPATIDE
     Indication: Neuropathy peripheral
  15. MOUNJARO [Suspect]
     Active Substance: TIRZEPATIDE
     Indication: Neuropathy peripheral
  16. MOUNJARO [Suspect]
     Active Substance: TIRZEPATIDE
     Indication: Neuropathy peripheral
  17. MOUNJARO [Suspect]
     Active Substance: TIRZEPATIDE
     Indication: Weight control
  18. MOUNJARO [Suspect]
     Active Substance: TIRZEPATIDE
     Indication: Weight control
  19. MOUNJARO [Suspect]
     Active Substance: TIRZEPATIDE
     Indication: Weight control
  20. MOUNJARO [Suspect]
     Active Substance: TIRZEPATIDE
     Indication: Weight control
  21. MOUNJARO [Suspect]
     Active Substance: TIRZEPATIDE
     Indication: Glycosylated haemoglobin increased
  22. MOUNJARO [Suspect]
     Active Substance: TIRZEPATIDE
     Indication: Glycosylated haemoglobin increased
  23. MOUNJARO [Suspect]
     Active Substance: TIRZEPATIDE
     Indication: Glycosylated haemoglobin increased
  24. MOUNJARO [Suspect]
     Active Substance: TIRZEPATIDE
     Indication: Glycosylated haemoglobin increased
  25. MOUNJARO [Suspect]
     Active Substance: TIRZEPATIDE
     Indication: Blood pressure increased
  26. MOUNJARO [Suspect]
     Active Substance: TIRZEPATIDE
     Indication: Blood pressure increased
  27. MOUNJARO [Suspect]
     Active Substance: TIRZEPATIDE
     Indication: Blood pressure increased
  28. MOUNJARO [Suspect]
     Active Substance: TIRZEPATIDE
     Indication: Blood pressure increased
  29. MOUNJARO [Suspect]
     Active Substance: TIRZEPATIDE
     Indication: Blood glucose increased
     Dosage: 5 MG, UNKNOWN
     Route: 058
  30. MOUNJARO [Suspect]
     Active Substance: TIRZEPATIDE
     Indication: Blood glucose increased
     Dosage: 5 MG, UNKNOWN
     Route: 058
  31. MOUNJARO [Suspect]
     Active Substance: TIRZEPATIDE
     Indication: Blood glucose increased
     Dosage: 5 MG, UNKNOWN
     Route: 058
  32. MOUNJARO [Suspect]
     Active Substance: TIRZEPATIDE
     Indication: Blood glucose increased
     Dosage: 5 MG, UNKNOWN
     Route: 058
  33. MOUNJARO [Suspect]
     Active Substance: TIRZEPATIDE
     Indication: Blood cholesterol increased
  34. MOUNJARO [Suspect]
     Active Substance: TIRZEPATIDE
     Indication: Blood cholesterol increased
  35. MOUNJARO [Suspect]
     Active Substance: TIRZEPATIDE
     Indication: Blood cholesterol increased
  36. MOUNJARO [Suspect]
     Active Substance: TIRZEPATIDE
     Indication: Blood cholesterol increased
  37. MOUNJARO [Suspect]
     Active Substance: TIRZEPATIDE
     Indication: Cerebrovascular accident
  38. MOUNJARO [Suspect]
     Active Substance: TIRZEPATIDE
     Indication: Cerebrovascular accident
  39. MOUNJARO [Suspect]
     Active Substance: TIRZEPATIDE
     Indication: Cerebrovascular accident
  40. MOUNJARO [Suspect]
     Active Substance: TIRZEPATIDE
     Indication: Cerebrovascular accident
  41. MOUNJARO [Suspect]
     Active Substance: TIRZEPATIDE
     Indication: Neuropathy peripheral
  42. MOUNJARO [Suspect]
     Active Substance: TIRZEPATIDE
     Indication: Neuropathy peripheral
  43. MOUNJARO [Suspect]
     Active Substance: TIRZEPATIDE
     Indication: Neuropathy peripheral
  44. MOUNJARO [Suspect]
     Active Substance: TIRZEPATIDE
     Indication: Neuropathy peripheral
  45. MOUNJARO [Suspect]
     Active Substance: TIRZEPATIDE
     Indication: Weight control
  46. MOUNJARO [Suspect]
     Active Substance: TIRZEPATIDE
     Indication: Weight control
  47. MOUNJARO [Suspect]
     Active Substance: TIRZEPATIDE
     Indication: Weight control
  48. MOUNJARO [Suspect]
     Active Substance: TIRZEPATIDE
     Indication: Weight control
  49. MOUNJARO [Suspect]
     Active Substance: TIRZEPATIDE
     Indication: Glycosylated haemoglobin increased
  50. MOUNJARO [Suspect]
     Active Substance: TIRZEPATIDE
     Indication: Glycosylated haemoglobin increased
  51. MOUNJARO [Suspect]
     Active Substance: TIRZEPATIDE
     Indication: Glycosylated haemoglobin increased
  52. MOUNJARO [Suspect]
     Active Substance: TIRZEPATIDE
     Indication: Glycosylated haemoglobin increased
  53. MOUNJARO [Suspect]
     Active Substance: TIRZEPATIDE
     Indication: Blood pressure increased
  54. MOUNJARO [Suspect]
     Active Substance: TIRZEPATIDE
     Indication: Blood pressure increased
  55. MOUNJARO [Suspect]
     Active Substance: TIRZEPATIDE
     Indication: Blood pressure increased
  56. MOUNJARO [Suspect]
     Active Substance: TIRZEPATIDE
     Indication: Blood pressure increased
  57. MOUNJARO [Suspect]
     Active Substance: TIRZEPATIDE
     Indication: Blood glucose increased
     Dosage: 7.5 MG, UNKNOWN
     Route: 058
  58. MOUNJARO [Suspect]
     Active Substance: TIRZEPATIDE
     Indication: Blood glucose increased
     Dosage: 7.5 MG, UNKNOWN
     Route: 058
  59. MOUNJARO [Suspect]
     Active Substance: TIRZEPATIDE
     Indication: Blood glucose increased
     Dosage: 7.5 MG, UNKNOWN
     Route: 058
  60. MOUNJARO [Suspect]
     Active Substance: TIRZEPATIDE
     Indication: Blood glucose increased
     Dosage: 7.5 MG, UNKNOWN
     Route: 058
  61. MOUNJARO [Suspect]
     Active Substance: TIRZEPATIDE
     Indication: Blood cholesterol increased
  62. MOUNJARO [Suspect]
     Active Substance: TIRZEPATIDE
     Indication: Blood cholesterol increased
  63. MOUNJARO [Suspect]
     Active Substance: TIRZEPATIDE
     Indication: Blood cholesterol increased
  64. MOUNJARO [Suspect]
     Active Substance: TIRZEPATIDE
     Indication: Blood cholesterol increased
  65. MOUNJARO [Suspect]
     Active Substance: TIRZEPATIDE
     Indication: Cerebrovascular accident
  66. MOUNJARO [Suspect]
     Active Substance: TIRZEPATIDE
     Indication: Cerebrovascular accident
  67. MOUNJARO [Suspect]
     Active Substance: TIRZEPATIDE
     Indication: Cerebrovascular accident
  68. MOUNJARO [Suspect]
     Active Substance: TIRZEPATIDE
     Indication: Cerebrovascular accident
  69. MOUNJARO [Suspect]
     Active Substance: TIRZEPATIDE
     Indication: Neuropathy peripheral
  70. MOUNJARO [Suspect]
     Active Substance: TIRZEPATIDE
     Indication: Neuropathy peripheral
  71. MOUNJARO [Suspect]
     Active Substance: TIRZEPATIDE
     Indication: Neuropathy peripheral
  72. MOUNJARO [Suspect]
     Active Substance: TIRZEPATIDE
     Indication: Neuropathy peripheral
  73. MOUNJARO [Suspect]
     Active Substance: TIRZEPATIDE
     Indication: Weight control
  74. MOUNJARO [Suspect]
     Active Substance: TIRZEPATIDE
     Indication: Weight control
  75. MOUNJARO [Suspect]
     Active Substance: TIRZEPATIDE
     Indication: Weight control
  76. MOUNJARO [Suspect]
     Active Substance: TIRZEPATIDE
     Indication: Weight control
  77. MOUNJARO [Suspect]
     Active Substance: TIRZEPATIDE
     Indication: Glycosylated haemoglobin increased
  78. MOUNJARO [Suspect]
     Active Substance: TIRZEPATIDE
     Indication: Glycosylated haemoglobin increased
  79. MOUNJARO [Suspect]
     Active Substance: TIRZEPATIDE
     Indication: Glycosylated haemoglobin increased
  80. MOUNJARO [Suspect]
     Active Substance: TIRZEPATIDE
     Indication: Glycosylated haemoglobin increased
  81. MOUNJARO [Suspect]
     Active Substance: TIRZEPATIDE
     Indication: Blood pressure increased
  82. MOUNJARO [Suspect]
     Active Substance: TIRZEPATIDE
     Indication: Blood pressure increased
  83. MOUNJARO [Suspect]
     Active Substance: TIRZEPATIDE
     Indication: Blood pressure increased
  84. MOUNJARO [Suspect]
     Active Substance: TIRZEPATIDE
     Indication: Blood pressure increased
  85. MOUNJARO [Suspect]
     Active Substance: TIRZEPATIDE
     Indication: Blood glucose increased
     Dosage: 10 MG, UNKNOWN
     Route: 058
  86. MOUNJARO [Suspect]
     Active Substance: TIRZEPATIDE
     Indication: Blood glucose increased
     Dosage: 10 MG, UNKNOWN
     Route: 058
  87. MOUNJARO [Suspect]
     Active Substance: TIRZEPATIDE
     Indication: Blood glucose increased
     Dosage: 10 MG, UNKNOWN
     Route: 058
  88. MOUNJARO [Suspect]
     Active Substance: TIRZEPATIDE
     Indication: Blood glucose increased
     Dosage: 10 MG, UNKNOWN
     Route: 058
  89. MOUNJARO [Suspect]
     Active Substance: TIRZEPATIDE
     Indication: Blood glucose increased
     Dosage: 10 MG, UNKNOWN
     Route: 058
  90. MOUNJARO [Suspect]
     Active Substance: TIRZEPATIDE
     Indication: Blood glucose increased
     Dosage: 10 MG, UNKNOWN
     Route: 058
  91. MOUNJARO [Suspect]
     Active Substance: TIRZEPATIDE
     Indication: Blood cholesterol increased
     Dosage: 10 MG, UNKNOWN
     Route: 058
  92. MOUNJARO [Suspect]
     Active Substance: TIRZEPATIDE
     Indication: Blood cholesterol increased
     Dosage: 10 MG, UNKNOWN
     Route: 058
  93. MOUNJARO [Suspect]
     Active Substance: TIRZEPATIDE
     Indication: Blood cholesterol increased
     Dosage: 10 MG, UNKNOWN
     Route: 058
  94. MOUNJARO [Suspect]
     Active Substance: TIRZEPATIDE
     Indication: Blood cholesterol increased
     Dosage: 10 MG, UNKNOWN
     Route: 058
  95. MOUNJARO [Suspect]
     Active Substance: TIRZEPATIDE
     Indication: Blood cholesterol increased
     Dosage: 10 MG, UNKNOWN
     Route: 058
  96. MOUNJARO [Suspect]
     Active Substance: TIRZEPATIDE
     Indication: Blood cholesterol increased
     Dosage: 10 MG, UNKNOWN
     Route: 058
  97. MOUNJARO [Suspect]
     Active Substance: TIRZEPATIDE
     Indication: Cerebrovascular accident
  98. MOUNJARO [Suspect]
     Active Substance: TIRZEPATIDE
     Indication: Cerebrovascular accident
  99. MOUNJARO [Suspect]
     Active Substance: TIRZEPATIDE
     Indication: Cerebrovascular accident
  100. MOUNJARO [Suspect]
     Active Substance: TIRZEPATIDE
     Indication: Cerebrovascular accident
  101. MOUNJARO [Suspect]
     Active Substance: TIRZEPATIDE
     Indication: Cerebrovascular accident
  102. MOUNJARO [Suspect]
     Active Substance: TIRZEPATIDE
     Indication: Cerebrovascular accident
  103. MOUNJARO [Suspect]
     Active Substance: TIRZEPATIDE
     Indication: Neuropathy peripheral
  104. MOUNJARO [Suspect]
     Active Substance: TIRZEPATIDE
     Indication: Neuropathy peripheral
  105. MOUNJARO [Suspect]
     Active Substance: TIRZEPATIDE
     Indication: Neuropathy peripheral
  106. MOUNJARO [Suspect]
     Active Substance: TIRZEPATIDE
     Indication: Neuropathy peripheral
  107. MOUNJARO [Suspect]
     Active Substance: TIRZEPATIDE
     Indication: Neuropathy peripheral
  108. MOUNJARO [Suspect]
     Active Substance: TIRZEPATIDE
     Indication: Neuropathy peripheral
  109. MOUNJARO [Suspect]
     Active Substance: TIRZEPATIDE
     Indication: Weight control
  110. MOUNJARO [Suspect]
     Active Substance: TIRZEPATIDE
     Indication: Weight control
  111. MOUNJARO [Suspect]
     Active Substance: TIRZEPATIDE
     Indication: Weight control
  112. MOUNJARO [Suspect]
     Active Substance: TIRZEPATIDE
     Indication: Weight control
  113. MOUNJARO [Suspect]
     Active Substance: TIRZEPATIDE
     Indication: Weight control
  114. MOUNJARO [Suspect]
     Active Substance: TIRZEPATIDE
     Indication: Weight control
  115. MOUNJARO [Suspect]
     Active Substance: TIRZEPATIDE
     Indication: Glycosylated haemoglobin increased
  116. MOUNJARO [Suspect]
     Active Substance: TIRZEPATIDE
     Indication: Glycosylated haemoglobin increased
  117. MOUNJARO [Suspect]
     Active Substance: TIRZEPATIDE
     Indication: Glycosylated haemoglobin increased
  118. MOUNJARO [Suspect]
     Active Substance: TIRZEPATIDE
     Indication: Glycosylated haemoglobin increased
  119. MOUNJARO [Suspect]
     Active Substance: TIRZEPATIDE
     Indication: Glycosylated haemoglobin increased
  120. MOUNJARO [Suspect]
     Active Substance: TIRZEPATIDE
     Indication: Glycosylated haemoglobin increased
  121. MOUNJARO [Suspect]
     Active Substance: TIRZEPATIDE
     Indication: Blood pressure increased
  122. MOUNJARO [Suspect]
     Active Substance: TIRZEPATIDE
     Indication: Blood pressure increased
  123. MOUNJARO [Suspect]
     Active Substance: TIRZEPATIDE
     Indication: Blood pressure increased
  124. MOUNJARO [Suspect]
     Active Substance: TIRZEPATIDE
     Indication: Blood pressure increased
  125. MOUNJARO [Suspect]
     Active Substance: TIRZEPATIDE
     Indication: Blood pressure increased
  126. MOUNJARO [Suspect]
     Active Substance: TIRZEPATIDE
     Indication: Blood pressure increased
  127. ZOFRAN [Suspect]
     Active Substance: ONDANSETRON HYDROCHLORIDE
     Indication: Nausea
     Dosage: UNK UNK, UNKNOWN
     Route: 065

REACTIONS (8)
  - Headache [Unknown]
  - Somnolence [Unknown]
  - Incorrect dose administered [Unknown]
  - Malaise [Unknown]
  - Nausea [Unknown]
  - Abdominal distension [Unknown]
  - Vomiting [Unknown]
  - Injection site pain [Unknown]

NARRATIVE: CASE EVENT DATE: 20240918
